FAERS Safety Report 13428160 (Version 4)
Quarter: 2017Q3

REPORT INFORMATION
  Report Type: Report from Study
  Country: US (occurrence: US)
  Receive Date: 20170411
  Receipt Date: 20170907
  Transmission Date: 20171127
  Serious: Yes (Hospitalization)
  Sender: FDA-Public Use
  Company Number: US-ACTELION-A-US2017-152216

PATIENT
  Age: 79 Year
  Sex: Female
  Weight: 57.6 kg

DRUGS (2)
  1. OPSUMIT [Suspect]
     Active Substance: MACITENTAN
     Indication: PULMONARY HYPERTENSION
     Dosage: 10 MG, QD
     Route: 048
  2. OPSUMIT [Suspect]
     Active Substance: MACITENTAN
     Dosage: UNK
     Route: 048

REACTIONS (6)
  - Radial nerve palsy [Unknown]
  - Bronchitis [Unknown]
  - Asthenia [Unknown]
  - Pneumonia [Unknown]
  - Urinary incontinence [Unknown]
  - Movement disorder [Unknown]
